FAERS Safety Report 6012961-8 (Version None)
Quarter: 2008Q4

REPORT INFORMATION
  Report Type: 
  Country: None (occurrence: None)
  Receive Date: 20081219
  Receipt Date: 20080721
  Transmission Date: 20090506
  Serious: No
  Sender: FDA-Public Use
  Company Number: A0738640A

PATIENT
  Age: 36 Year
  Sex: Male

DRUGS (2)
  1. TRIZIVIR [Suspect]
     Indication: HIV INFECTION
     Dosage: 1TAB TWICE PER DAY
     Route: 048
  2. OTHER MEDICATIONS [Concomitant]

REACTIONS (1)
  - BLOOD PRESSURE INCREASED [None]
